FAERS Safety Report 10734138 (Version 1)
Quarter: 2015Q1

REPORT INFORMATION
  Report Type: Spontaneous
  Country: FR (occurrence: FR)
  Receive Date: 20150123
  Receipt Date: 20150123
  Transmission Date: 20150721
  Serious: Yes (Hospitalization)
  Sender: FDA-Public Use
  Company Number: FR-009507513-1501FRA005808

PATIENT
  Sex: Female

DRUGS (4)
  1. OVITRELLE [Suspect]
     Active Substance: CHORIOGONADOTROPIN ALFA
     Indication: OVULATION INDUCTION
     Dosage: UNK
     Dates: start: 20140614, end: 20140614
  2. FOLLITROPIN BETA [Suspect]
     Active Substance: FOLLITROPIN
     Indication: OVULATION INDUCTION
     Dosage: 225 DF, QD
     Dates: start: 20140605, end: 20140613
  3. ORGALUTRAN [Suspect]
     Active Substance: GANIRELIX ACETATE
     Indication: OVULATION INDUCTION
     Dosage: STRENGTH: 0.25MG/0.5ML
     Dates: start: 20140610, end: 20140613
  4. PROVAMES [Suspect]
     Active Substance: ESTRADIOL
     Indication: OVULATION INDUCTION
     Dosage: 2 DF, QD
     Route: 048
     Dates: start: 20140605, end: 20140605

REACTIONS (4)
  - Abdominal pain [Recovered/Resolved]
  - Ascites [Recovered/Resolved]
  - Dyspnoea [Recovered/Resolved]
  - Ovarian hyperstimulation syndrome [Recovered/Resolved]

NARRATIVE: CASE EVENT DATE: 2014
